FAERS Safety Report 5051927-1 (Version None)
Quarter: 2006Q3

REPORT INFORMATION
  Report Type: 
  Country: None (occurrence: None)
  Receive Date: 20060713
  Receipt Date: 20060713
  Transmission Date: 20061208
  Serious: Yes (Hospitalization)
  Sender: FDA-Public Use
  Company Number: None

PATIENT
  Age: 56 Year
  Sex: Male

DRUGS (1)
  1. DEXAMETHASONE 4MG TAB [Suspect]
     Indication: BRAIN NEOPLASM
     Dosage: 6 MG PO Q D
     Route: 048

REACTIONS (1)
  - BLOOD GLUCOSE INCREASED [None]
